FAERS Safety Report 8002552-1 (Version None)
Quarter: 2011Q4

REPORT INFORMATION
  Report Type: 
  Country: None (occurrence: None)
  Receive Date: 20111222
  Receipt Date: 20111219
  Transmission Date: 20120403
  Serious: Yes (Other)
  Sender: FDA-Public Use
  Company Number: US-TEVA-314326USA

PATIENT

DRUGS (1)
  1. PACLITAXEL [Suspect]
     Dosage: 150 MG / 25 ML

REACTIONS (1)
  - ESCHERICHIA SEPSIS [None]
